FAERS Safety Report 9311475 (Version 2)
Quarter: 2013Q2

REPORT INFORMATION
  Report Type: Spontaneous
  Country: US (occurrence: US)
  Receive Date: 20130528
  Receipt Date: 20130605
  Transmission Date: 20140414
  Serious: No
  Sender: FDA-Public Use
  Company Number: US-009507513-1305USA015176

PATIENT
  Age: 18 Year
  Sex: Female
  Weight: 70.3 kg

DRUGS (1)
  1. IMPLANON [Suspect]
     Indication: CONTRACEPTION
     Dosage: ROD INSERTED INTO ARM
     Route: 059
     Dates: start: 20120718

REACTIONS (4)
  - Device breakage [Unknown]
  - Device physical property issue [Unknown]
  - Product quality issue [Unknown]
  - No adverse event [Unknown]
